FAERS Safety Report 17526285 (Version 1)
Quarter: 2020Q1

REPORT INFORMATION
  Report Type: Spontaneous
  Country: US (occurrence: US)
  Receive Date: 20200311
  Receipt Date: 20200311
  Transmission Date: 20200409
  Serious: No
  Sender: FDA-Public Use
  Company Number: US-HIKMA PHARMACEUTICALS USA INC.-US-H14001-19-05759

PATIENT

DRUGS (1)
  1. LIDOCAINE. [Suspect]
     Active Substance: LIDOCAINE
     Indication: DIAGNOSTIC ASPIRATION
     Route: 030
     Dates: end: 20191021

REACTIONS (3)
  - Rash [Recovering/Resolving]
  - Drug hypersensitivity [Recovering/Resolving]
  - Urticaria [Recovering/Resolving]
